FAERS Safety Report 8449798-6 (Version None)
Quarter: 2012Q2

REPORT INFORMATION
  Report Type: 
  Country: None (occurrence: None)
  Receive Date: 20120620
  Receipt Date: 20111115
  Transmission Date: 20120825
  Serious: No
  Sender: FDA-Public Use
  Company Number: US-TEVA-2011005867

PATIENT
  Sex: Female
  Weight: 64.014 kg

DRUGS (4)
  1. FENTORA [Suspect]
     Route: 002
     Dates: start: 20100101, end: 20100101
  2. TAMOXIFEN CITRATE [Concomitant]
     Indication: BREAST CANCER METASTATIC
     Dates: start: 20030101, end: 20080101
  3. FENTORA [Suspect]
     Route: 002
     Dates: start: 20080101, end: 20080101
  4. ACTIQ [Suspect]
     Indication: BREAST CANCER METASTATIC
     Route: 002
     Dates: start: 20050101

REACTIONS (3)
  - DRUG PRESCRIBING ERROR [None]
  - NAUSEA [None]
  - VOMITING [None]
